FAERS Safety Report 6753453-8 (Version None)
Quarter: 2010Q2

REPORT INFORMATION
  Report Type: 
  Country: None (occurrence: None)
  Receive Date: 20100603
  Receipt Date: 20100525
  Transmission Date: 20101027
  Serious: Yes (Death, Life-Threatening, Other)
  Sender: FDA-Public Use
  Company Number: JP-PFIZER INC-2009228142

PATIENT
  Age: 66 Year
  Sex: Female
  Weight: 45.6 kg

DRUGS (15)
  1. SUNITINIB MALATE [Suspect]
     Indication: RENAL CELL CARCINOMA
     Dosage: 50 MG, 1X/DAY
     Route: 048
     Dates: start: 20080908
  2. MEDICON [Concomitant]
     Dosage: UNK
     Route: 048
  3. BIOFERMIN R [Concomitant]
     Dosage: UNK
     Route: 048
     Dates: start: 20080915
  4. THYRADIN [Concomitant]
     Dosage: UNK
     Route: 048
  5. PRIMPERAN TAB [Concomitant]
     Dosage: UNK
     Route: 048
     Dates: start: 20080915
  6. PROCHLORPERAZINE [Concomitant]
     Dosage: UNK
     Route: 048
     Dates: start: 20080926
  7. NORVASC [Concomitant]
     Dosage: UNK
     Route: 048
     Dates: end: 20081006
  8. DOXAZOSIN MESYLATE [Concomitant]
     Dosage: UNK
     Route: 048
  9. OMEPRAL [Concomitant]
     Route: 048
     Dates: start: 20081007, end: 20081121
  10. MOBIC [Concomitant]
     Route: 048
  11. PREDONINE [Concomitant]
     Route: 048
  12. TAKEPRON [Concomitant]
     Route: 048
  13. FENTANYL [Concomitant]
     Route: 062
  14. CALCIUM POLYSTYRENE SULFONATE [Concomitant]
  15. MUCODYNE [Concomitant]
     Dosage: UNK
     Route: 048

REACTIONS (3)
  - DEATH [None]
  - DEPRESSION [None]
  - PLATELET COUNT DECREASED [None]
